FAERS Safety Report 6237617-8 (Version None)
Quarter: 2009Q2

REPORT INFORMATION
  Report Type: 
  Country: None (occurrence: None)
  Receive Date: 20090619
  Receipt Date: 20090528
  Transmission Date: 20091009
  Serious: Yes (Hospitalization)
  Sender: FDA-Public Use
  Company Number: FR-MERCK-0905FRA00094

PATIENT
  Age: 70 Year
  Sex: Male

DRUGS (13)
  1. NOROXIN [Suspect]
     Indication: PYREXIA
     Route: 048
     Dates: start: 20090203, end: 20090208
  2. NOROXIN [Suspect]
     Indication: DIARRHOEA
     Route: 048
     Dates: start: 20090203, end: 20090208
  3. DICLOFENAC SODIUM [Suspect]
     Indication: HIP ARTHROPLASTY
     Route: 048
     Dates: start: 20081101, end: 20090201
  4. ATORVASTATIN CALCIUM [Suspect]
     Indication: CARDIOVASCULAR EVENT PROPHYLAXIS
     Route: 048
     Dates: start: 20080101, end: 20090211
  5. ASPIRIN LYSINE [Suspect]
     Indication: CARDIOVASCULAR EVENT PROPHYLAXIS
     Route: 048
     Dates: start: 20080101, end: 20090211
  6. METFORMIN PAMOATE [Suspect]
     Indication: DIABETES MELLITUS
     Route: 048
     Dates: start: 20080101, end: 20090211
  7. GLIMEPIRIDE [Suspect]
     Indication: DIABETES MELLITUS
     Route: 048
     Dates: start: 20080901, end: 20090211
  8. ACETAMINOPHEN AND CODEINE PHOSPHATE [Suspect]
     Indication: HIP ARTHROPLASTY
     Route: 048
     Dates: start: 20081101, end: 20090201
  9. PINAVERIUM BROMIDE [Suspect]
     Indication: PYREXIA
     Route: 048
     Dates: start: 20090203, end: 20090208
  10. PINAVERIUM BROMIDE [Suspect]
     Indication: DIARRHOEA
     Route: 048
     Dates: start: 20090203, end: 20090208
  11. RACECADOTRIL [Suspect]
     Indication: PYREXIA
     Route: 048
     Dates: start: 20090203, end: 20090208
  12. RACECADOTRIL [Suspect]
     Indication: DIARRHOEA
     Route: 048
     Dates: start: 20090203, end: 20090208
  13. INSULIN [Concomitant]
     Route: 065

REACTIONS (1)
  - CYTOLYTIC HEPATITIS [None]
